FAERS Safety Report 12889018 (Version 3)
Quarter: 2016Q4

REPORT INFORMATION
  Report Type: Report from Study
  Country: IN (occurrence: IN)
  Receive Date: 20161027
  Receipt Date: 20161222
  Transmission Date: 20170207
  Serious: Yes (Other)
  Sender: FDA-Public Use
  Company Number: PHHY2016IN146598

PATIENT
  Age: 61 Year
  Sex: Female

DRUGS (4)
  1. SCAPHO [Suspect]
     Active Substance: SECUKINUMAB
     Dosage: 300 MG, UNK (SEVENTH DOSE)
     Route: 065
     Dates: start: 20161208
  2. SCAPHO [Suspect]
     Active Substance: SECUKINUMAB
     Dosage: 300 MG, UNK (SIXTH DOSE)
     Route: 065
     Dates: start: 20161107
  3. SCAPHO [Suspect]
     Active Substance: SECUKINUMAB
     Indication: PSORIASIS
     Dosage: 300 MG, UNK
     Route: 058
     Dates: start: 20160917
  4. SCAPHO [Suspect]
     Active Substance: SECUKINUMAB
     Dosage: 300 MG, UNK (FOURTH DOSE )
     Route: 065
     Dates: start: 20161008

REACTIONS (4)
  - Rash [Unknown]
  - Skin exfoliation [Unknown]
  - Peripheral swelling [Not Recovered/Not Resolved]
  - Skin discolouration [Unknown]

NARRATIVE: CASE EVENT DATE: 20161005
